FAERS Safety Report 7755761-0 (Version None)
Quarter: 2011Q3

REPORT INFORMATION
  Report Type: 
  Country: None (occurrence: None)
  Receive Date: 20110916
  Receipt Date: 20110913
  Transmission Date: 20111222
  Serious: Yes (Death, Other)
  Sender: FDA-Public Use
  Company Number: PHFR2011GB02666

PATIENT
  Sex: Male
  Weight: 98.4 kg

DRUGS (1)
  1. CLOZAPINE [Suspect]
     Indication: SCHIZOPHRENIA
     Dosage: 350 MG, DAILY
     Route: 048
     Dates: start: 19910704

REACTIONS (3)
  - DIABETES MELLITUS [None]
  - BLOOD GLUCOSE INCREASED [None]
  - WEIGHT DECREASED [None]
